FAERS Safety Report 6477986-7 (Version None)
Quarter: 2009Q4

REPORT INFORMATION
  Report Type: 
  Country: None (occurrence: None)
  Receive Date: 20091207
  Receipt Date: 20091130
  Transmission Date: 20100525
  Serious: Yes (Hospitalization)
  Sender: FDA-Public Use
  Company Number: B0604488A

PATIENT
  Sex: Female

DRUGS (8)
  1. PAXIL [Suspect]
     Indication: DEPRESSION
     Dosage: 10MG PER DAY
     Route: 048
     Dates: start: 20091019
  2. TAKEPRON [Suspect]
     Dosage: 30MG PER DAY
     Route: 048
     Dates: start: 20091019
  3. CONIEL [Suspect]
     Indication: HYPERTENSION
     Dosage: 4MG PER DAY
     Route: 048
     Dates: start: 20091013
  4. GASMOTIN [Suspect]
     Indication: GASTRITIS
     Dosage: 5MG THREE TIMES PER DAY
     Route: 048
     Dates: start: 20091019
  5. MAGNESIUM OXIDE [Concomitant]
     Indication: CONSTIPATION
     Route: 048
  6. PLAVIX [Concomitant]
     Route: 048
  7. CRESTOR [Concomitant]
     Route: 048
  8. BACLOFEN [Concomitant]
     Route: 048

REACTIONS (2)
  - ABDOMINAL DISCOMFORT [None]
  - SUICIDE ATTEMPT [None]
